FAERS Safety Report 5699394-9 (Version None)
Quarter: 2008Q2

REPORT INFORMATION
  Report Type: 
  Country: None (occurrence: None)
  Receive Date: 20080407
  Receipt Date: 20080403
  Transmission Date: 20081010
  Serious: Yes (Other)
  Sender: FDA-Public Use
  Company Number: A0696952A

PATIENT
  Age: 65 Year
  Sex: Female

DRUGS (18)
  1. METHYLCELLULOSE SUSPENSION SUGAR FREE ORANGE (METHYLCELLULOSE) [Suspect]
     Indication: GASTROINTESTINAL DISORDER
     Dosage: ORAL
     Route: 048
     Dates: start: 20070701
  2. METHYLCELLULOSE SUSPENSION (METHYLCELLULOSE) [Suspect]
     Indication: GASTROINTESTINAL DISORDER
     Dosage: ORAL
     Route: 048
     Dates: start: 20070701
  3. MULTIVITAMIN [Suspect]
     Indication: VITAMIN SUPPLEMENTATION
     Dosage: ORAL
     Route: 048
  4. DOCUSATE SODIUM [Concomitant]
  5. FISH OIL [Concomitant]
  6. CALCIUM WITH VITAMIN D [Concomitant]
  7. LISINOPRIL [Concomitant]
  8. ATORVASTATIN CALCIUM [Concomitant]
  9. ATENOLOL [Concomitant]
  10. AMLODIPINE [Concomitant]
  11. HYDROCHLOROTHIAZIDE [Concomitant]
  12. VITAMIN D [Concomitant]
  13. OMEGA-3 MARINE TRIGLYCERI [Concomitant]
  14. OSTEO-BI-FLEX [Concomitant]
  15. CENTRUM SILVER [Concomitant]
  16. ASCORBIC ACID [Concomitant]
  17. VITAMIN B [Concomitant]
  18. CITRATE SALT [Concomitant]

REACTIONS (6)
  - BLOOD CALCIUM INCREASED [None]
  - BLOOD CHLORIDE DECREASED [None]
  - BLOOD SODIUM DECREASED [None]
  - GLOMERULAR FILTRATION RATE DECREASED [None]
  - RENAL FAILURE [None]
  - RENAL IMPAIRMENT [None]
